FAERS Safety Report 6105242-5 (Version None)
Quarter: 2009Q1

REPORT INFORMATION
  Report Type: 
  Country: None (occurrence: None)
  Receive Date: 20090304
  Receipt Date: 20090225
  Transmission Date: 20090719
  Serious: Yes (Other)
  Sender: FDA-Public Use
  Company Number: JPI-P-006093

PATIENT
  Age: 32 Year
  Sex: Female

DRUGS (2)
  1. XYREM [Suspect]
     Indication: NARCOLEPSY
     Dosage: 4.5 GM (2.25 GM,2 IN 1 D),ORAL; 9 GM (4.5 GM,2 IN 1 D), ORAL
     Route: 048
     Dates: start: 20080418
  2. XYREM [Suspect]
     Indication: NARCOLEPSY
     Dosage: 4.5 GM (2.25 GM,2 IN 1 D),ORAL; 9 GM (4.5 GM,2 IN 1 D), ORAL
     Route: 048
     Dates: start: 20090102

REACTIONS (1)
  - GRAND MAL CONVULSION [None]
